FAERS Safety Report 15941727 (Version 1)
Quarter: 2019Q1

REPORT INFORMATION
  Report Type: Spontaneous
  Country: CA (occurrence: CA)
  Receive Date: 20190209
  Receipt Date: 20190209
  Transmission Date: 20190417
  Serious: Yes (Other)
  Sender: FDA-Public Use
  Company Number: CA-ABBVIE-16K-028-1775193-00

PATIENT
  Age: 48 Year
  Sex: Female

DRUGS (15)
  1. HUMIRA [Suspect]
     Active Substance: ADALIMUMAB
     Indication: PRODUCT USED FOR UNKNOWN INDICATION
     Route: 058
  2. ENBREL [Suspect]
     Active Substance: ETANERCEPT
     Indication: PRODUCT USED FOR UNKNOWN INDICATION
     Route: 058
  3. NEORAL [Suspect]
     Active Substance: CYCLOSPORINE
     Route: 048
  4. COSENTYX [Suspect]
     Active Substance: SECUKINUMAB
     Indication: PSORIASIS
     Route: 058
  5. ENBREL [Suspect]
     Active Substance: ETANERCEPT
     Route: 058
  6. NEORAL [Suspect]
     Active Substance: CYCLOSPORINE
     Indication: PSORIASIS
     Route: 048
  7. CLOBETASOL [Concomitant]
     Active Substance: CLOBETASOL
     Indication: PRODUCT USED FOR UNKNOWN INDICATION
  8. ACITRETIN. [Concomitant]
     Active Substance: ACITRETIN
     Indication: PRODUCT USED FOR UNKNOWN INDICATION
  9. REMICADE [Suspect]
     Active Substance: INFLIXIMAB
     Indication: PRODUCT USED FOR UNKNOWN INDICATION
     Route: 042
  10. METHOTREXATE. [Suspect]
     Active Substance: METHOTREXATE
     Indication: PRODUCT USED FOR UNKNOWN INDICATION
     Route: 065
  11. BETAMETHASONE DIPROPIONATE W/CALCIPOTRIOL [Concomitant]
     Indication: PRODUCT USED FOR UNKNOWN INDICATION
  12. CYCLOSPORIN [Suspect]
     Active Substance: CYCLOSPORINE
     Indication: PSORIASIS
     Route: 048
  13. NEORAL [Suspect]
     Active Substance: CYCLOSPORINE
     Route: 048
  14. ACITRETIN. [Concomitant]
     Active Substance: ACITRETIN
     Indication: PRODUCT USED FOR UNKNOWN INDICATION
  15. ENBREL [Suspect]
     Active Substance: ETANERCEPT
     Route: 058

REACTIONS (18)
  - Glycosylated haemoglobin increased [Recovered/Resolved]
  - Localised oedema [Recovered/Resolved]
  - Serum ferritin increased [Recovered/Resolved]
  - Arthritis [Recovered/Resolved]
  - Upper respiratory tract infection [Recovered/Resolved]
  - Urticaria [Recovered/Resolved]
  - Blood alkaline phosphatase increased [Recovered/Resolved]
  - Guttate psoriasis [Recovered/Resolved]
  - Pruritus [Recovered/Resolved]
  - Blood pressure increased [Recovered/Resolved]
  - Sinusitis [Recovered/Resolved]
  - Blood iron decreased [Recovered/Resolved]
  - Haemoglobin decreased [Recovered/Resolved]
  - Pneumonia [Recovered/Resolved]
  - Skin lesion [Recovered/Resolved]
  - Glucose tolerance impaired [Recovered/Resolved]
  - Bronchitis [Recovered/Resolved]
  - Erythema [Recovered/Resolved]
